FAERS Safety Report 24082449 (Version 1)
Quarter: 2024Q3

REPORT INFORMATION
  Report Type: Report from Study
  Country: US (occurrence: US)
  Receive Date: 20240712
  Receipt Date: 20240712
  Transmission Date: 20241017
  Serious: Yes (Other)
  Sender: ABBVIE
  Company Number: US-ABBVIE-5834195

PATIENT
  Sex: Male

DRUGS (3)
  1. DUOPA [Suspect]
     Active Substance: CARBIDOPA\LEVODOPA
     Indication: Parkinson^s disease
     Dosage: DOSE: 1 CASSETTE, MORNING DOSE, DUOPA (100ML X 7) STRENGTH: 4.63-20MG
     Route: 050
     Dates: start: 202303
  2. DUOPA [Suspect]
     Active Substance: CARBIDOPA\LEVODOPA
     Dosage: DUOPA (100ML X 7) STRENGTH: 4.63-20MG?DOSE: 1 CASSETTE, CONTINUOUS DOSE: 2.7ML PER HOUR (UPPER LI...
     Route: 050
     Dates: start: 202303
  3. DUOPA [Suspect]
     Active Substance: CARBIDOPA\LEVODOPA
     Dosage: DOSE: 1 CASSETTE, EXTRA DOSE, DUOPA (100ML X 7) STRENGTH: 4.63-20MG ?2ML EVERY 2 HOURS UP TO 2.5 ML
     Route: 050
     Dates: start: 202303

REACTIONS (1)
  - Thrombosis [Unknown]
